FAERS Safety Report 15706976 (Version 1)
Quarter: 2018Q4

REPORT INFORMATION
  Report Type: Spontaneous
  Country: GR (occurrence: GR)
  Receive Date: 20181210
  Receipt Date: 20181210
  Transmission Date: 20190205
  Serious: Yes (Death, Other)
  Sender: FDA-Public Use
  Company Number: GR-GILEAD-2018-0378661

PATIENT
  Age: 39 Year
  Sex: Male

DRUGS (2)
  1. STRIBILD [Suspect]
     Active Substance: COBICISTAT\ELVITEGRAVIR\EMTRICITABINE\TENOFOVIR DISOPROXIL FUMARATE
     Indication: HIV TEST POSITIVE
     Dosage: UNK
     Route: 065
  2. METHYLPREDNISOLONE. [Concomitant]
     Active Substance: METHYLPREDNISOLONE
     Dosage: 1 G, QD X5 DAYS

REACTIONS (1)
  - Immune reconstitution inflammatory syndrome [Fatal]
